FAERS Safety Report 18571421 (Version 1)
Quarter: 2020Q4

REPORT INFORMATION
  Report Type: Spontaneous
  Country: FR (occurrence: FR)
  Receive Date: 20201202
  Receipt Date: 20201202
  Transmission Date: 20210114
  Serious: Yes (Hospitalization, Other)
  Sender: FDA-Public Use
  Company Number: FR-BRISTOL-MYERS SQUIBB COMPANY-BMS-2020-099508

PATIENT
  Age: 55 Year
  Sex: Male
  Weight: 76 kg

DRUGS (2)
  1. OPDIVO [Suspect]
     Active Substance: NIVOLUMAB
     Indication: METASTATIC MALIGNANT MELANOMA
     Dosage: 84 MILLIGRAM, QCYCLE
     Route: 042
     Dates: start: 20200810, end: 20201012
  2. YERVOY [Suspect]
     Active Substance: IPILIMUMAB
     Indication: METASTATIC MALIGNANT MELANOMA
     Dosage: 252 MILLIGRAM, QCYCLE
     Route: 042
     Dates: start: 20200810, end: 20201012

REACTIONS (5)
  - Autoimmune hepatitis [Recovering/Resolving]
  - Prescribed overdose [Unknown]
  - Dysphagia [Recovered/Resolved]
  - Diarrhoea [Recovering/Resolving]
  - Cholestasis [Recovering/Resolving]

NARRATIVE: CASE EVENT DATE: 20201030
